FAERS Safety Report 8546604-6 (Version None)
Quarter: 2012Q3

REPORT INFORMATION
  Report Type: 
  Country: None (occurrence: None)
  Receive Date: 20120727
  Receipt Date: 20111230
  Transmission Date: 20120928
  Serious: No
  Sender: FDA-Public Use
  Company Number: US-ASTRAZENECA-2012SE00046

PATIENT
  Age: 30 Year
  Sex: Male
  Weight: 98 kg

DRUGS (5)
  1. SEROQUEL XR [Suspect]
     Indication: SCHIZOPHRENIA
     Route: 048
  2. TYLENOL [Concomitant]
     Indication: PAIN
  3. SEROQUEL XR [Suspect]
     Indication: PSYCHOTIC DISORDER
     Route: 048
  4. DEPAKOTE [Concomitant]
     Indication: BIPOLAR DISORDER
  5. TYLENOL [Concomitant]
     Indication: HEADACHE

REACTIONS (5)
  - LETHARGY [None]
  - DRUG INEFFECTIVE [None]
  - MANIA [None]
  - SOMNOLENCE [None]
  - DRUG DOSE OMISSION [None]
